FAERS Safety Report 9927366 (Version 1)
Quarter: 2014Q1

REPORT INFORMATION
  Report Type: Spontaneous
  Country: FR (occurrence: FR)
  Receive Date: 20140226
  Receipt Date: 20140226
  Transmission Date: 20141002
  Serious: Yes (Hospitalization)
  Sender: FDA-Public Use
  Company Number: FR-ABBVIE-14P-056-1206496-00

PATIENT
  Age: 86 Year
  Sex: Female

DRUGS (2)
  1. ZECLAR [Suspect]
     Indication: COUGH
     Route: 048
     Dates: start: 20140110, end: 20140117
  2. BRONCHOKOD [Suspect]
     Indication: COUGH
     Route: 048
     Dates: start: 20140110, end: 20140131

REACTIONS (7)
  - Hepatocellular injury [Recovering/Resolving]
  - Pyrexia [Recovering/Resolving]
  - Asthenia [Recovering/Resolving]
  - General physical health deterioration [Recovering/Resolving]
  - Rash maculo-papular [Recovering/Resolving]
  - Purpura [Recovering/Resolving]
  - Oedema peripheral [Recovering/Resolving]
